FAERS Safety Report 9517629 (Version 2)
Quarter: 2013Q4

REPORT INFORMATION
  Report Type: Spontaneous
  Country: US (occurrence: US)
  Receive Date: 20130912
  Receipt Date: 20131107
  Transmission Date: 20140711
  Serious: No
  Sender: FDA-Public Use
  Company Number: US-B.I. PHARMACEUTICALS,INC./RIDGEFIELD-2013-BI-27390BP

PATIENT
  Age: 46 Year
  Sex: Male
  Weight: 108.86 kg

DRUGS (4)
  1. PROVENTIL [Concomitant]
     Indication: EMPHYSEMA
     Dates: start: 2011
  2. COMBIVENT MDI [Concomitant]
     Indication: EMPHYSEMA
     Dosage: 2 PUF
     Route: 055
     Dates: start: 2003
  3. METFORMIN [Concomitant]
     Indication: DIABETES MELLITUS
     Dosage: 1000 MG
     Route: 048
     Dates: start: 2011
  4. SPIRIVA [Suspect]
     Indication: EMPHYSEMA
     Dosage: 18 MCG
     Route: 055
     Dates: start: 201307

REACTIONS (2)
  - Hypersomnia [Unknown]
  - Pruritus [Not Recovered/Not Resolved]
